FAERS Safety Report 25976259 (Version 1)
Quarter: 2025Q4

REPORT INFORMATION
  Report Type: Spontaneous
  Country: CN (occurrence: CN)
  Receive Date: 20251029
  Receipt Date: 20251029
  Transmission Date: 20260118
  Serious: Yes (Hospitalization, Other)
  Sender: GENUS LIFESCIENCES
  Company Number: CN-Genus_Lifesciences-USA-ALL0580202500143

PATIENT
  Age: 77 Year
  Sex: Female

DRUGS (3)
  1. ASPIRIN\CARISOPRODOL [Suspect]
     Active Substance: ASPIRIN\CARISOPRODOL
     Indication: Cerebral infarction
     Dosage: UNKNOWN
     Route: 048
     Dates: end: 2025
  2. PANTOPRAZOLE [Suspect]
     Active Substance: PANTOPRAZOLE
     Indication: Melaena
     Dosage: UNKNOWN
     Dates: start: 2025, end: 2025
  3. SOMATOSTATIN [Suspect]
     Active Substance: SOMATOSTATIN
     Indication: Melaena
     Dosage: UNKNOWN
     Dates: start: 2025, end: 2025

REACTIONS (4)
  - Clostridium difficile colitis [Recovered/Resolved]
  - Upper gastrointestinal haemorrhage [Recovered/Resolved]
  - Duodenitis [Recovered/Resolved]
  - Gastric ulcer [Recovered/Resolved]

NARRATIVE: CASE EVENT DATE: 20250101
